FAERS Safety Report 10267979 (Version 1)
Quarter: 2014Q2

REPORT INFORMATION
  Report Type: Spontaneous
  Country: US (occurrence: US)
  Receive Date: 20140630
  Receipt Date: 20140630
  Transmission Date: 20141212
  Serious: Yes (Hospitalization)
  Sender: FDA-Public Use
  Company Number: US-BAYER-2014-095254

PATIENT
  Age: 43 Year
  Sex: Female
  Weight: 79.37 kg

DRUGS (4)
  1. BEYAZ [Suspect]
  2. BENICAR [Concomitant]
  3. PEPCID [Concomitant]
  4. DETROL [Concomitant]

REACTIONS (2)
  - Pulmonary embolism [None]
  - Deep vein thrombosis [None]
